FAERS Safety Report 5505557-5 (Version None)
Quarter: 2007Q4

REPORT INFORMATION
  Report Type: 
  Country: None (occurrence: None)
  Receive Date: 20071102
  Receipt Date: 20071022
  Transmission Date: 20080405
  Serious: Yes (Other)
  Sender: FDA-Public Use
  Company Number: GB-ASTRAZENECA-2007GB02165

PATIENT
  Age: 54 Year
  Sex: Female
  Weight: 49.5 kg

DRUGS (2)
  1. ANASTROZOLE [Suspect]
     Indication: BREAST CANCER METASTATIC
     Route: 048
     Dates: start: 20070119, end: 20071015
  2. EXEMESTANE [Concomitant]
     Dates: start: 20070914

REACTIONS (1)
  - SECONDARY HYPERTENSION [None]
